FAERS Safety Report 17222720 (Version 1)
Quarter: 2020Q1

REPORT INFORMATION
  Report Type: Spontaneous
  Country: FI (occurrence: FI)
  Receive Date: 20200102
  Receipt Date: 20200102
  Transmission Date: 20200409
  Serious: Yes (Hospitalization)
  Sender: FDA-Public Use
  Company Number: FI-ABBVIE-19K-055-3215804-00

PATIENT
  Age: 57 Year
  Sex: Female

DRUGS (6)
  1. THYROXIN [Concomitant]
     Active Substance: LEVOTHYROXINE
     Indication: PRODUCT USED FOR UNKNOWN INDICATION
  2. FEMOSTON 2/10 [Concomitant]
     Active Substance: DYDROGESTERONE\ESTRADIOL
     Indication: PRODUCT USED FOR UNKNOWN INDICATION
  3. LIOTHYRONIN [Concomitant]
     Active Substance: LIOTHYRONINE SODIUM
     Indication: PRODUCT USED FOR UNKNOWN INDICATION
  4. TENOX [Concomitant]
     Indication: PRODUCT USED FOR UNKNOWN INDICATION
  5. TRADOLAN RETARD [Concomitant]
     Active Substance: TRAMADOL HYDROCHLORIDE
     Indication: PRODUCT USED FOR UNKNOWN INDICATION
  6. HUMIRA [Suspect]
     Active Substance: ADALIMUMAB
     Indication: RHEUMATOID ARTHRITIS
     Route: 058
     Dates: start: 200703, end: 20191218

REACTIONS (1)
  - Oligodendroglioma [Not Recovered/Not Resolved]

NARRATIVE: CASE EVENT DATE: 201902
